FAERS Safety Report 8756666 (Version 2)
Quarter: 2012Q4

REPORT INFORMATION
  Report Type: 
  Country: US (occurrence: US)
  Receive Date: 20120828
  Receipt Date: 20121217
  Transmission Date: 20130627
  Serious: Yes (Hospitalization, Other)
  Sender: FDA-Public Use
  Company Number: US-BAYER-2012-086847

PATIENT
  Age: 27 Year
  Sex: Female
  Weight: 136.5 kg

DRUGS (7)
  1. YASMIN [Suspect]
     Dosage: UNK
     Dates: start: 200202, end: 201105
  2. OCELLA [Suspect]
     Dosage: UNK
     Dates: start: 200202, end: 201105
  3. MUCINEX [Concomitant]
     Indication: SINUSITIS NOS
     Dosage: UNK UNK, BID
     Route: 048
     Dates: start: 201205
  4. BYSTOLIC [Concomitant]
     Dosage: UNK
     Dates: start: 201205
  5. BENICAR [Concomitant]
     Dosage: UNK
     Dates: start: 201204
  6. PENTASA [Concomitant]
     Indication: CROHN^S
     Dosage: UNK
     Dates: start: 200310
  7. PROTONIX [Concomitant]
     Indication: ACID REFLUX (OESOPHAGEAL)
     Dosage: UNK
     Route: 048
     Dates: start: 200310

REACTIONS (8)
  - Cholecystectomy [None]
  - Pulmonary embolism [None]
  - Dyspnoea [None]
  - Injury [None]
  - Pain [None]
  - Emotional distress [None]
  - Anxiety [None]
  - Psychological trauma [None]
